FAERS Safety Report 8519122-9 (Version None)
Quarter: 2012Q3

REPORT INFORMATION
  Report Type: 
  Country: None (occurrence: None)
  Receive Date: 20120718
  Receipt Date: 20120712
  Transmission Date: 20120928
  Serious: Yes (Death, Life-Threatening, Hospitalization, Disabling, Other)
  Sender: FDA-Public Use
  Company Number: JP-CELGENEUS-087-21880-11051188

PATIENT
  Sex: Male

DRUGS (44)
  1. PREDNISOLONE [Suspect]
     Dosage: 5 MILLIGRAM
     Route: 048
     Dates: start: 20110512, end: 20110525
  2. GLUFAST [Concomitant]
     Indication: DIABETES MELLITUS
     Dosage: 30 MILLIGRAM
     Route: 048
     Dates: start: 20110302, end: 20110607
  3. WARFARIN SODIUM [Concomitant]
     Dosage: 2 MILLIGRAM
     Route: 048
     Dates: start: 20110525, end: 20110607
  4. FAMOTIDINE [Concomitant]
     Indication: PROPHYLAXIS
     Dosage: 10 MILLIGRAM
     Route: 048
     Dates: start: 20100804, end: 20110524
  5. MUCOSTA [Concomitant]
     Indication: PROPHYLAXIS
     Dosage: 100 MILLIGRAM
     Route: 048
     Dates: start: 20090909, end: 20110607
  6. FLOMAX [Concomitant]
     Indication: PROPHYLAXIS
     Dosage: 400 MILLIGRAM
     Route: 048
     Dates: start: 20111018, end: 20111022
  7. PREDNISOLONE [Suspect]
     Dosage: 60 MILLIGRAM
     Route: 048
     Dates: start: 20110526, end: 20110601
  8. PREDNISOLONE [Suspect]
     Indication: MULTIPLE MYELOMA
     Dosage: 10 MILLIGRAM
     Route: 041
     Dates: start: 20120209, end: 20120217
  9. WARFARIN SODIUM [Concomitant]
     Dosage: 1.5 MILLIGRAM
     Route: 048
     Dates: start: 20110518, end: 20110524
  10. MAGNESIUM OXIDE [Concomitant]
     Indication: PROPHYLAXIS
     Dosage: 3 GRAM
     Route: 048
     Dates: start: 20090204, end: 20110607
  11. ZOMETA [Concomitant]
     Indication: PROPHYLAXIS
     Dosage: .1 MILLIGRAM
     Route: 041
     Dates: start: 20110323, end: 20110420
  12. LANSOPRAZOLE [Concomitant]
     Indication: PROPHYLAXIS
     Dosage: 30 MILLIGRAM
     Route: 058
     Dates: start: 20120118, end: 20120217
  13. PREDNISOLONE [Suspect]
     Dosage: 5 MILLIGRAM
     Route: 048
     Dates: start: 20110331, end: 20110413
  14. DEXAMETHASONE [Suspect]
     Dosage: 2.8571 MILLIGRAM
     Route: 048
     Dates: start: 20120113, end: 20120203
  15. MAGNESIUM OXIDE [Concomitant]
     Dosage: 3 GRAM
     Route: 048
     Dates: start: 20110817, end: 20120208
  16. SLOW-K [Concomitant]
     Indication: PROPHYLAXIS
     Dosage: 1.2 GRAM
     Route: 048
     Dates: start: 20110817, end: 20120107
  17. GLUFAST [Concomitant]
     Dosage: 30 MILLIGRAM
     Route: 048
     Dates: start: 20110817, end: 20120209
  18. TAMSULOSIN HCL [Concomitant]
     Dosage: .2 MILLIGRAM
     Route: 048
     Dates: start: 20041101, end: 20110607
  19. HUMULIN R [Concomitant]
     Indication: DIABETES MELLITUS
     Dosage: 10-22 U
     Route: 058
     Dates: start: 20120118, end: 20120205
  20. REVLIMID [Suspect]
     Indication: MULTIPLE MYELOMA
     Dosage: 15 MILLIGRAM
     Route: 048
     Dates: start: 20110324, end: 20110413
  21. PREDNISOLONE [Suspect]
     Indication: MULTIPLE MYELOMA
     Dosage: 60 MILLIGRAM
     Route: 048
     Dates: start: 20110324, end: 20110330
  22. DEXAMETHASONE [Suspect]
     Indication: MULTIPLE MYELOMA
     Dosage: 2.8571 MILLIGRAM
     Route: 048
     Dates: start: 20111210, end: 20120107
  23. WARFARIN SODIUM [Concomitant]
     Dosage: 1.5 MILLIGRAM
     Route: 048
     Dates: start: 20110817, end: 20111126
  24. TAMSULOSIN HCL [Concomitant]
     Dosage: .2 MILLIGRAM
     Route: 048
     Dates: start: 20110817, end: 20120208
  25. SHA-KANZO-TO [Concomitant]
     Indication: PROPHYLAXIS
     Dosage: 7.5 GRAM
     Route: 048
     Dates: start: 20110817, end: 20120107
  26. SHA-KANZO-TO [Concomitant]
     Dosage: 7 GRAM
     Route: 048
     Dates: start: 20120108, end: 20120208
  27. REVLIMID [Suspect]
     Dosage: 5 MILLIGRAM
     Route: 048
     Dates: start: 20110817, end: 20110906
  28. LEVOTHYROXINE SODIUM [Concomitant]
     Dosage: 50 MICROGRAM
     Route: 048
     Dates: start: 20120108, end: 20120217
  29. DIOVAN [Concomitant]
     Dosage: 40 MILLIGRAM
     Route: 048
     Dates: start: 20110817, end: 20120208
  30. SLOW-K [Concomitant]
     Dosage: 600 MILLIGRAM
     Route: 048
     Dates: start: 20120108, end: 20120209
  31. REVLIMID [Suspect]
     Dosage: 5 MILLIGRAM
     Route: 048
     Dates: start: 20110914, end: 20111003
  32. REVLIMID [Suspect]
     Dosage: 5 MILLIGRAM
     Route: 048
     Dates: start: 20111012, end: 20111022
  33. REVLIMID [Suspect]
     Dosage: 5 MILLIGRAM
     Route: 048
     Dates: start: 20111211, end: 20111231
  34. PREDNISOLONE [Suspect]
     Dosage: 10 MILLIGRAM
     Route: 048
     Dates: start: 20110817, end: 20120208
  35. WARFARIN SODIUM [Concomitant]
     Indication: PROPHYLAXIS
     Dosage: 2 MILLIGRAM
     Route: 048
     Dates: start: 20090610, end: 20110511
  36. MUCOSTA [Concomitant]
     Dosage: 100 MILLIGRAM
     Route: 048
     Dates: start: 20110817, end: 20120208
  37. DIOVAN [Concomitant]
     Indication: HYPERTENSION
     Dosage: 40 MILLIGRAM
     Route: 048
     Dates: start: 20041101, end: 20110607
  38. REVLIMID [Suspect]
     Dosage: 15 MILLIGRAM
     Route: 048
     Dates: start: 20110421, end: 20110511
  39. REVLIMID [Suspect]
     Dosage: 5 MILLIGRAM
     Route: 048
     Dates: start: 20120125, end: 20120211
  40. PREDNISOLONE [Suspect]
     Dosage: 60 MILLIGRAM
     Route: 048
     Dates: start: 20110421, end: 20110511
  41. CLARITHROMYCIN [Concomitant]
     Indication: MULTIPLE MYELOMA
     Dosage: 200 MILLIGRAM
     Route: 048
     Dates: start: 20111127, end: 20120107
  42. LEVOTHYROXINE SODIUM [Concomitant]
     Dosage: 75 MICROGRAM
     Route: 048
     Dates: start: 19811101, end: 20110607
  43. LEVOTHYROXINE SODIUM [Concomitant]
     Dosage: 75 MICROGRAM
     Route: 048
     Dates: start: 20110817, end: 20120107
  44. ZOMETA [Concomitant]
     Dosage: 3 MILLIGRAM
     Route: 041
     Dates: start: 20110518, end: 20110518

REACTIONS (23)
  - SEPSIS [None]
  - THROMBOCYTOPENIA [None]
  - NEUTROPHIL COUNT DECREASED [None]
  - PNEUMONIA [None]
  - ANAEMIA [None]
  - MUSCULAR WEAKNESS [None]
  - DISSEMINATED INTRAVASCULAR COAGULATION [None]
  - PLATELET COUNT DECREASED [None]
  - NEUROPATHY PERIPHERAL [None]
  - DYSPNOEA [None]
  - LOBAR PNEUMONIA [None]
  - PYREXIA [None]
  - NEUTROPENIA [None]
  - CARDIAC FAILURE CONGESTIVE [None]
  - PROTHROMBIN TIME RATIO INCREASED [None]
  - HERPES ZOSTER [None]
  - CEREBRAL INFARCTION [None]
  - BLOOD CREATININE INCREASED [None]
  - CONSTIPATION [None]
  - HAEMOGLOBIN DECREASED [None]
  - BRONCHOPNEUMONIA [None]
  - DECREASED APPETITE [None]
  - C-REACTIVE PROTEIN INCREASED [None]
